FAERS Safety Report 4724258-4 (Version None)
Quarter: 2005Q3

REPORT INFORMATION
  Report Type: 
  Country: None (occurrence: None)
  Receive Date: 20050722
  Receipt Date: 20050720
  Transmission Date: 20060218
  Serious: Yes (Other)
  Sender: FDA-Public Use
  Company Number: 213741

PATIENT
  Age: 57 Year
  Sex: Male

DRUGS (9)
  1. RITUXIMAB (RITUXIMAB) CONC FOR SOLUTION FOR INFUSION [Suspect]
     Indication: MANTLE CELL LYMPHOMA
     Dosage: 375 MG/M2
  2. VINCRISTINE [Concomitant]
  3. DOXORUBICIN HCL [Concomitant]
  4. DEXAMETHASONE [Concomitant]
  5. CHLORAMBUCIL (CHLORAMBUCIL) [Concomitant]
  6. METHYLPREDNISOLONE [Concomitant]
  7. CYTARABINE [Concomitant]
  8. METHOTREXATE [Concomitant]
  9. STEM CELL TRANSPLANT (STEM CELLS) [Concomitant]

REACTIONS (11)
  - AREFLEXIA [None]
  - CHEST PAIN [None]
  - CYTOMEGALOVIRUS INFECTION [None]
  - HEADACHE [None]
  - HYPOGAMMAGLOBULINAEMIA [None]
  - LOWER MOTOR NEURONE LESION [None]
  - MENINGORADICULITIS [None]
  - MUSCULAR WEAKNESS [None]
  - NERVOUS SYSTEM DISORDER [None]
  - NEURITIS [None]
  - THERAPY NON-RESPONDER [None]
